FAERS Safety Report 13840836 (Version 3)
Quarter: 2018Q1

REPORT INFORMATION
  Report Type: Spontaneous
  Country: FR (occurrence: FR)
  Receive Date: 20170807
  Receipt Date: 20180301
  Transmission Date: 20180508
  Serious: Yes (Hospitalization)
  Sender: FDA-Public Use
  Company Number: FR-SA-2017SA141202

PATIENT
  Age: 78 Year
  Sex: Female

DRUGS (8)
  1. LACTULOSE. [Suspect]
     Active Substance: LACTULOSE
     Route: 065
  2. LOVENOX [Suspect]
     Active Substance: ENOXAPARIN SODIUM
     Route: 051
  3. XELODA [Suspect]
     Active Substance: CAPECITABINE
     Indication: RECTAL ADENOCARCINOMA
     Route: 048
     Dates: start: 20170710, end: 20170710
  4. MONOPROST [Suspect]
     Active Substance: LATANOPROST
     Route: 065
     Dates: start: 201704
  5. PARACETAMOL [Suspect]
     Active Substance: ACETAMINOPHEN
     Route: 065
     Dates: start: 201704
  6. ALPRAZOLAM. [Suspect]
     Active Substance: ALPRAZOLAM
     Route: 048
     Dates: start: 201704
  7. MODAMIDE [Suspect]
     Active Substance: AMILORIDE HYDROCHLORIDE
     Route: 065
     Dates: start: 201704
  8. MACROGOL [Concomitant]
     Active Substance: POLYETHYLENE GLYCOLS
     Route: 065
     Dates: start: 201704

REACTIONS (5)
  - Aphasia [Recovered/Resolved]
  - Ataxia [Recovered/Resolved]
  - Balance disorder [Recovered/Resolved]
  - Memory impairment [Recovered/Resolved]
  - Confusional state [Recovered/Resolved]

NARRATIVE: CASE EVENT DATE: 20170711
